FAERS Safety Report 4392315-0 (Version None)
Quarter: 2004Q3

REPORT INFORMATION
  Report Type: 
  Country: None (occurrence: None)
  Receive Date: 20040702
  Receipt Date: 20040329
  Transmission Date: 20050211
  Serious: Yes (Other)
  Sender: FDA-Public Use
  Company Number: 2004UW04078

PATIENT
  Age: 60 Year
  Sex: Female
  Weight: 91.173 kg

DRUGS (7)
  1. CRESTOR [Suspect]
     Indication: BLOOD CHOLESTEROL INCREASED
     Dosage: 10 MG ONCE PO
     Route: 048
  2. HYDROCODONE [Concomitant]
  3. NEURONTIN [Concomitant]
  4. DURAGESIC [Concomitant]
  5. TYLENOL [Concomitant]
  6. LORTAB [Concomitant]
  7. ZANTAC [Concomitant]

REACTIONS (3)
  - HEART RATE INCREASED [None]
  - MOOD ALTERED [None]
  - PAIN [None]
